FAERS Safety Report 5063152-9 (Version None)
Quarter: 2006Q3

REPORT INFORMATION
  Report Type: 
  Country: None (occurrence: None)
  Receive Date: 20060724
  Receipt Date: 20060707
  Transmission Date: 20061208
  Serious: Yes (Congenital Anomaly)
  Sender: FDA-Public Use
  Company Number: 006865

PATIENT
  Sex: Male

DRUGS (6)
  1. DIDANOSINE [Suspect]
     Indication: HIV INFECTION
     Dosage: 1 CAPS, QD, ORAL
     Route: 048
     Dates: start: 20040601
  2. LAMIVUDINE [Suspect]
     Indication: HIV INFECTION
     Dosage: 300 MG, QD, ORAL
     Route: 048
     Dates: start: 20040601
  3. NEVIRAPINE [Suspect]
     Indication: HIV INFECTION
     Dosage: 400 MG, QD ORAL
     Route: 048
     Dates: start: 20040601, end: 20051208
  4. NEVIRAPINE [Suspect]
     Indication: HIV INFECTION
     Dosage: 400 MG, QD ORAL
     Route: 048
     Dates: start: 20051219
  5. KALETRA [Suspect]
     Indication: HIV INFECTION
     Dosage: 1 CAPS, QD, ORAL
     Route: 048
     Dates: start: 20051208, end: 20051219
  6. ZIDOVUDINE                         (ZIDOVUDINE) INTRAVENOUS [Suspect]
     Indication: HIV INFECTION
     Dosage: INTRAVENOUS
     Route: 042
     Dates: start: 20060601, end: 20060601

REACTIONS (2)
  - DRUG EXPOSURE DURING PREGNANCY [None]
  - TRISOMY 21 [None]
